FAERS Safety Report 10846871 (Version 1)
Quarter: 2015Q1

REPORT INFORMATION
  Report Type: Spontaneous
  Country: US (occurrence: US)
  Receive Date: 20150220
  Receipt Date: 20150220
  Transmission Date: 20150721
  Serious: Yes (Other)
  Sender: FDA-Public Use
  Company Number: US-BAYER-2015-023373

PATIENT
  Age: 66 Year
  Sex: Male

DRUGS (4)
  1. ACETYLSALICYLIC ACID({=100 MG) [Suspect]
     Active Substance: ASPIRIN
     Indication: ANTIPLATELET THERAPY
     Dosage: LOW-DOSE
  2. WARFARIN [Suspect]
     Active Substance: WARFARIN
     Indication: ANTICOAGULANT THERAPY
  3. METOPROLOL [Concomitant]
     Active Substance: METOPROLOL
  4. AMIODARONE [Concomitant]
     Active Substance: AMIODARONE

REACTIONS (3)
  - Oesophagitis [Recovered/Resolved]
  - Gastrointestinal angiodysplasia [None]
  - Gastrointestinal haemorrhage [Recovered/Resolved]
